FAERS Safety Report 11343507 (Version 1)
Quarter: 2015Q3

REPORT INFORMATION
  Report Type: Spontaneous
  Country: US (occurrence: None)
  Receive Date: 20150804
  Receipt Date: 20150804
  Transmission Date: 20151125
  Serious: Yes (Other)
  Sender: FDA-Public Use
  Company Number: None

PATIENT
  Age: 50 Year
  Sex: Male
  Weight: 93.44 kg

DRUGS (2)
  1. PRIVIGEN [Suspect]
     Active Substance: HUMAN IMMUNOGLOBULIN G
     Indication: GUILLAIN-BARRE SYNDROME
     Route: 042
     Dates: start: 20150723, end: 20150723
  2. PRIVIGEN [Suspect]
     Active Substance: HUMAN IMMUNOGLOBULIN G
     Indication: GUILLAIN-BARRE SYNDROME
     Route: 042
     Dates: start: 20150723, end: 20150723

REACTIONS (9)
  - Skin exfoliation [None]
  - Motor dysfunction [None]
  - Fall [None]
  - Rash macular [None]
  - Blister [None]
  - Thermal burn [None]
  - Malaise [None]
  - Paraesthesia [None]
  - Skin burning sensation [None]

NARRATIVE: CASE EVENT DATE: 20150723
